FAERS Safety Report 8450296-4 (Version None)
Quarter: 2012Q2

REPORT INFORMATION
  Report Type: 
  Country: None (occurrence: None)
  Receive Date: 20120620
  Receipt Date: 20120607
  Transmission Date: 20120825
  Serious: Yes (Other)
  Sender: FDA-Public Use
  Company Number: FR-PFIZER INC-2010060973

PATIENT
  Sex: Female

DRUGS (1)
  1. VIRACEPT [Suspect]
     Indication: PROPHYLAXIS
     Dosage: UNK
     Route: 065
     Dates: start: 20000501

REACTIONS (3)
  - SJOGREN'S SYNDROME [None]
  - NERVOUS SYSTEM DISORDER [None]
  - AUTOIMMUNE THYROIDITIS [None]
